FAERS Safety Report 4748327-8 (Version None)
Quarter: 2005Q3

REPORT INFORMATION
  Report Type: 
  Country: None (occurrence: None)
  Receive Date: 20050815
  Receipt Date: 20050517
  Transmission Date: 20060218
  Serious: No
  Sender: FDA-Public Use
  Company Number: USA041183136

PATIENT
  Age: 49 Year
  Sex: Male

DRUGS (3)
  1. CIALIS [Suspect]
     Indication: ERECTILE DYSFUNCTION
     Dosage: 20 MG
     Dates: start: 20041101
  2. GLYBURIDE [Concomitant]
  3. GLUCOPHAGE [Concomitant]

REACTIONS (6)
  - BACK PAIN [None]
  - CHROMATURIA [None]
  - CONSTIPATION [None]
  - DRUG INEFFECTIVE [None]
  - RENAL PAIN [None]
  - URINE ODOUR ABNORMAL [None]
